FAERS Safety Report 8528917-7 (Version None)
Quarter: 2012Q3

REPORT INFORMATION
  Report Type: 
  Country: None (occurrence: None)
  Receive Date: 20120723
  Receipt Date: 20120716
  Transmission Date: 20120928
  Serious: No
  Sender: FDA-Public Use
  Company Number: US-PFIZER INC-2012111301

PATIENT
  Sex: Female

DRUGS (16)
  1. FLONASE [Concomitant]
     Dosage: 50 UG, 2 SPRAYS EACH NOSTRIL QD
     Dates: start: 20110118
  2. LORTAB [Concomitant]
     Dosage: 5-500 MG TABLET, 1 BID PRN
     Route: 048
     Dates: start: 20120103
  3. SUMATRIPTAN SUCCINATE [Concomitant]
     Dosage: 50 MG, UNK
     Dates: start: 20110414
  4. ABILIFY [Concomitant]
     Dosage: 5 MG, 1X/DAY
     Route: 048
     Dates: start: 20120502
  5. VYTORIN [Concomitant]
     Dosage: 10-40 MG TABLET, I QD
     Route: 048
     Dates: start: 20110728
  6. XANAX [Concomitant]
     Dosage: 0.5 MG, UNK
     Route: 048
     Dates: start: 20120127
  7. VITAMIN D [Concomitant]
     Dosage: 1000 UNIT CAPSULE, ONCE A DAY
     Route: 048
     Dates: start: 20110531
  8. ATENOLOL [Concomitant]
     Dosage: 50 MG, 1X/DAY
     Route: 048
     Dates: start: 20110728
  9. FIORICET [Concomitant]
     Dosage: 50-325-40 MG TABLET, I BPO Q4H PRN
     Dates: start: 20120103
  10. VITAMIN B12 AND FOLIC ACID [Concomitant]
     Dosage: 500-400 MCG TABLET, 2 PO ONCE A DAY
     Route: 048
     Dates: start: 20110531
  11. CETIRIZINE [Concomitant]
     Indication: HYPERSENSITIVITY
     Dosage: 10 MG, 1X/DAY
     Route: 048
     Dates: start: 20110621
  12. PREMARIN [Suspect]
     Indication: HORMONE REPLACEMENT THERAPY
     Dosage: 0.9 MG, 1X/DAY
     Route: 048
     Dates: start: 20120201
  13. METFORMIN [Concomitant]
     Dosage: 500 MG, 2 BID
     Route: 048
     Dates: start: 20110728
  14. PRISTIQ [Concomitant]
     Dosage: 100 MG, 1X/DAY
     Route: 048
     Dates: start: 20120629
  15. ESTROGENS CONJUGATED [Concomitant]
     Dosage: 0.9 MG, 1X/DAY
     Route: 048
     Dates: start: 20110630
  16. RANITIDINE HYDROCHLORIDE [Concomitant]
     Dosage: 150 MG, TABLET, I BID PRN
     Route: 048
     Dates: start: 20110728

REACTIONS (1)
  - HYPERHIDROSIS [None]
